FAERS Safety Report 13201576 (Version 2)
Quarter: 2017Q1

REPORT INFORMATION
  Report Type: Spontaneous
  Country: IT (occurrence: IT)
  Receive Date: 20170209
  Receipt Date: 20170218
  Transmission Date: 20170428
  Serious: Yes (Other)
  Sender: FDA-Public Use
  Company Number: IT-ACCORD-048014

PATIENT
  Age: 70 Year
  Sex: Male

DRUGS (1)
  1. FLUOROURACIL. [Suspect]
     Active Substance: FLUOROURACIL
     Indication: ADENOCARCINOMA OF COLON
     Dosage: INTRAVENOUS DRIP FLUOROURACIL AT THE DOSE OF 3800 MG CYCLICAL FOR 2 MONTHS
     Route: 042

REACTIONS (2)
  - Hyperamylasaemia [Unknown]
  - Hyperlipasaemia [Unknown]

NARRATIVE: CASE EVENT DATE: 20161219
